FAERS Safety Report 12986902 (Version 3)
Quarter: 2016Q4

REPORT INFORMATION
  Report Type: Spontaneous
  Country: RU (occurrence: RU)
  Receive Date: 20161130
  Receipt Date: 20161213
  Transmission Date: 20170207
  Serious: Yes (Hospitalization)
  Sender: FDA-Public Use
  Company Number: RU-JNJFOC-20161124354

PATIENT
  Age: 26 Year
  Sex: Male
  Weight: 67 kg

DRUGS (9)
  1. CEFTRIAXONE. [Concomitant]
     Active Substance: CEFTRIAXONE
     Indication: PSORIASIS
     Dosage: 1G PER 1,00 FL. 2 TIMES
     Route: 030
     Dates: start: 20161012, end: 20161014
  2. DEXTROSE. [Concomitant]
     Active Substance: DEXTROSE
     Indication: PSORIASIS
     Dosage: 5% 200 ML PER 1 FL. 1 TIME BY DROP INFUSION
     Route: 065
     Dates: start: 20161012, end: 20161014
  3. VITAMINE C [Concomitant]
     Active Substance: ASCORBIC ACID
     Indication: PSORIASIS
     Dosage: 5% 1ML PER 1 AMPULE 1 TIME BY DROP INFUSION
     Route: 065
     Dates: start: 20161014, end: 20161014
  4. STELARA [Suspect]
     Active Substance: USTEKINUMAB
     Indication: PSORIASIS
     Route: 058
     Dates: start: 201602
  5. NOVOCAIN [Concomitant]
     Active Substance: PROCAINE HYDROCHLORIDE
     Indication: PSORIASIS
     Dosage: 0,5% 10ML PER 1,00 AMPULE 2 TIMES
     Route: 030
     Dates: start: 20161012, end: 20161014
  6. SODIUM CHLORIDE. [Concomitant]
     Active Substance: SODIUM CHLORIDE
     Indication: PSORIASIS
     Dosage: 0,9% 250ML PER 1FL. 1 TIME
     Route: 065
     Dates: start: 20161014, end: 20161014
  7. METAMIZOLE SODIUM [Concomitant]
     Active Substance: METAMIZOLE SODIUM
     Indication: PSORIASIS
     Dosage: 50% 2ML PER 1,00 AMPULE 1TIME BY DROP INFUSION
     Route: 065
     Dates: start: 20161014, end: 20161014
  8. STELARA [Suspect]
     Active Substance: USTEKINUMAB
     Indication: PSORIASIS
     Route: 058
     Dates: start: 201601
  9. STELARA [Suspect]
     Active Substance: USTEKINUMAB
     Indication: PSORIASIS
     Route: 058
     Dates: start: 201605, end: 20160826

REACTIONS (3)
  - Psoriasis [Recovering/Resolving]
  - Pyelonephritis chronic [Recovering/Resolving]
  - Acute kidney injury [Recovering/Resolving]

NARRATIVE: CASE EVENT DATE: 20160825
